FAERS Safety Report 11869523 (Version 2)
Quarter: 2015Q4

REPORT INFORMATION
  Report Type: Spontaneous
  Country: CN (occurrence: CN)
  Receive Date: 20151228
  Receipt Date: 20151229
  Transmission Date: 20160305
  Serious: Yes (Hospitalization)
  Sender: FDA-Public Use
  Company Number: CN-ROCHE-1684382

PATIENT
  Age: 35 Year
  Sex: Male

DRUGS (2)
  1. LUCENTIS [Suspect]
     Active Substance: RANIBIZUMAB
     Indication: CHORIORETINOPATHY
     Route: 031
     Dates: start: 20151023, end: 20151023
  2. LUCENTIS [Suspect]
     Active Substance: RANIBIZUMAB
     Route: 031
     Dates: start: 201508, end: 201508

REACTIONS (2)
  - Uveitis [Unknown]
  - Product use issue [Unknown]

NARRATIVE: CASE EVENT DATE: 20151104
